FAERS Safety Report 8487021-7 (Version None)
Quarter: 2012Q3

REPORT INFORMATION
  Report Type: 
  Country: None (occurrence: None)
  Receive Date: 20120704
  Receipt Date: 20120629
  Transmission Date: 20120928
  Serious: Yes (Death, Hospitalization, Other)
  Sender: FDA-Public Use
  Company Number: PHHY2012JP009542

PATIENT
  Sex: Female

DRUGS (10)
  1. LASIX [Concomitant]
     Dosage: 20 MG, UNK
     Route: 048
     Dates: start: 20110621, end: 20120124
  2. AFINITOR [Suspect]
     Indication: METASTATIC RENAL CELL CARCINOMA
     Dosage: 5 MG, DAILY
     Route: 048
     Dates: start: 20110621
  3. FAMOTIDINE [Concomitant]
     Indication: METASTATIC RENAL CELL CARCINOMA
     Dosage: 40 MG, UNK
     Route: 048
     Dates: start: 20110621, end: 20120124
  4. AMARYL [Concomitant]
     Dosage: 1 MG, UNK
     Route: 048
     Dates: start: 20110817, end: 20120124
  5. GLIMICRON [Concomitant]
     Dosage: 20 MG, UNK
     Dates: start: 20110621, end: 20110816
  6. AMLODIPINE [Concomitant]
     Dosage: 10 MG, UNK
     Route: 048
     Dates: start: 20110621, end: 20120124
  7. ALDACTONE [Concomitant]
     Dosage: 25 MG, UNK
     Route: 048
     Dates: start: 20110621, end: 20120124
  8. BASEN [Concomitant]
     Dosage: 0.9 MG, UNK
     Route: 048
     Dates: start: 20110621, end: 20120124
  9. TRICHLORMETHIAZIDE [Concomitant]
     Indication: METASTATIC RENAL CELL CARCINOMA
     Dosage: 1 MG, UNK
     Route: 048
     Dates: start: 20111109, end: 20120124
  10. OLMESARTAN MEDOXOMIL [Concomitant]
     Dosage: 40 MG, UNK
     Route: 048
     Dates: start: 20110621, end: 20120224

REACTIONS (4)
  - HYPOALBUMINAEMIA [None]
  - DIABETES MELLITUS [None]
  - ANAEMIA [None]
  - CEREBRAL HAEMORRHAGE [None]
